FAERS Safety Report 9456743 (Version 2)
Quarter: 2013Q3

REPORT INFORMATION
  Report Type: Spontaneous
  Country: JP (occurrence: JP)
  Receive Date: 20130813
  Receipt Date: 20130902
  Transmission Date: 20140515
  Serious: Yes (Other)
  Sender: FDA-Public Use
  Company Number: JP-009507513-1308JPN005109

PATIENT
  Age: 60 Year
  Sex: Male

DRUGS (1)
  1. KIPRES [Suspect]
     Indication: PRODUCT USED FOR UNKNOWN INDICATION
     Dosage: UNK
     Route: 048
     Dates: start: 201206, end: 201206

REACTIONS (1)
  - Drug eruption [Recovered/Resolved]
